FAERS Safety Report 19157127 (Version 1)
Quarter: 2021Q2

REPORT INFORMATION
  Report Type: Spontaneous
  Country: GB (occurrence: GB)
  Receive Date: 20210420
  Receipt Date: 20210420
  Transmission Date: 20210717
  Serious: Yes (Other)
  Sender: FDA-Public Use
  Company Number: GB-AUROBINDO-AUR-APL-2021-016355

PATIENT
  Age: 9 Year
  Sex: Female

DRUGS (16)
  1. ANAKINRA [Concomitant]
     Active Substance: ANAKINRA
     Dosage: 48 MILLIGRAM/KILOGRAM, ONCE A DAY
     Route: 042
  2. PREDNISOLONE. [Suspect]
     Active Substance: PREDNISOLONE
     Indication: HAEMOPHAGOCYTIC LYMPHOHISTIOCYTOSIS
     Dosage: 2 MILLIGRAM/KILOGRAM, ONCE A DAY
     Route: 065
  3. CICLOSPORIN [Concomitant]
     Active Substance: CYCLOSPORINE
     Indication: PRODUCT USED FOR UNKNOWN INDICATION
     Dosage: UNK
     Route: 065
  4. ACICLOVIR [Suspect]
     Active Substance: ACYCLOVIR
     Indication: HAEMOPHAGOCYTIC LYMPHOHISTIOCYTOSIS
     Dosage: UNK
     Route: 042
  5. MEROPENEM. [Suspect]
     Active Substance: MEROPENEM
     Indication: HAEMOPHAGOCYTIC LYMPHOHISTIOCYTOSIS
     Dosage: UNK
     Route: 065
  6. CEFTRIAXONE. [Suspect]
     Active Substance: CEFTRIAXONE
     Indication: HAEMOPHAGOCYTIC LYMPHOHISTIOCYTOSIS
     Dosage: UNK
     Route: 042
  7. DEXAMETHASONE. [Suspect]
     Active Substance: DEXAMETHASONE
     Indication: HAEMOPHAGOCYTIC LYMPHOHISTIOCYTOSIS
     Dosage: UNK
     Route: 065
  8. IMMUNOGLOBULIN (IVIG) [Suspect]
     Active Substance: HUMAN IMMUNOGLOBULIN G
     Indication: HAEMOPHAGOCYTIC LYMPHOHISTIOCYTOSIS
     Dosage: 2 GRAM PER KILOGRAM
     Route: 042
  9. TEICOPLANIN [Suspect]
     Active Substance: TEICOPLANIN
     Indication: HAEMOPHAGOCYTIC LYMPHOHISTIOCYTOSIS
     Dosage: UNK
     Route: 065
  10. ANAKINRA [Concomitant]
     Active Substance: ANAKINRA
     Indication: HAEMOPHAGOCYTIC LYMPHOHISTIOCYTOSIS
     Dosage: 12 MILLIGRAM/KILOGRAM, ONCE A DAY
     Route: 042
  11. COTRIMOXAZOLE [Concomitant]
     Active Substance: SULFAMETHOXAZOLE\TRIMETHOPRIM
     Indication: PROPHYLAXIS
     Dosage: UNK
     Route: 065
  12. FLUCONAZOLE. [Concomitant]
     Active Substance: FLUCONAZOLE
     Indication: PROPHYLAXIS
     Dosage: UNK
     Route: 065
  13. AMOXICILLIN+CLAVULANIC ACID [Suspect]
     Active Substance: AMOXICILLIN\CLAVULANIC ACID
     Indication: HAEMOPHAGOCYTIC LYMPHOHISTIOCYTOSIS
     Dosage: UNK
     Route: 065
  14. CLINDAMYCIN. [Suspect]
     Active Substance: CLINDAMYCIN
     Indication: HAEMOPHAGOCYTIC LYMPHOHISTIOCYTOSIS
     Dosage: UNK
     Route: 065
  15. DOXYCYCLINE. [Suspect]
     Active Substance: DOXYCYCLINE
     Indication: HAEMOPHAGOCYTIC LYMPHOHISTIOCYTOSIS
     Dosage: UNK
     Route: 065
  16. METHYLPREDNISOLONE. [Suspect]
     Active Substance: METHYLPREDNISOLONE
     Indication: HAEMOPHAGOCYTIC LYMPHOHISTIOCYTOSIS
     Dosage: 30 MILLIGRAM/KILOGRAM, ONCE A DAY
     Route: 042

REACTIONS (1)
  - Drug ineffective [Unknown]
